FAERS Safety Report 6059376-4 (Version None)
Quarter: 2009Q1

REPORT INFORMATION
  Report Type: 
  Country: None (occurrence: None)
  Receive Date: 20090130
  Receipt Date: 20090123
  Transmission Date: 20090719
  Serious: Yes (Death)
  Sender: FDA-Public Use
  Company Number: US-SANOFI-SYNTHELABO-A03200900360

PATIENT
  Age: 86 Year
  Sex: Female
  Weight: 49.89 kg

DRUGS (2)
  1. TAKING TWO OTHER MEDICATIONS [Concomitant]
     Indication: DRUG USE FOR UNKNOWN INDICATION
     Dosage: UNK
     Route: 065
  2. PLAVIX [Suspect]
     Indication: POOR PERIPHERAL CIRCULATION
     Route: 048

REACTIONS (1)
  - DEATH [None]
